FAERS Safety Report 8474109-X (Version None)
Quarter: 2012Q2

REPORT INFORMATION
  Report Type: 
  Country: None (occurrence: None)
  Receive Date: 20120628
  Receipt Date: 20110527
  Transmission Date: 20120825
  Serious: Yes (Death)
  Sender: FDA-Public Use
  Company Number: US-MYLANLABS-2011S1010244

PATIENT
  Age: 59 Year
  Sex: Male

DRUGS (4)
  1. CLOZAPINE [Suspect]
     Route: 048
     Dates: start: 20100301, end: 20101221
  2. RISPERDAL [Concomitant]
  3. CLOZAPINE [Suspect]
     Route: 048
     Dates: start: 20101221, end: 20110201
  4. DEPAKOTE ER [Concomitant]

REACTIONS (1)
  - DEATH [None]
